FAERS Safety Report 19703416 (Version 1)
Quarter: 2021Q3

REPORT INFORMATION
  Report Type: Report from Study
  Country: DE (occurrence: DE)
  Receive Date: 20210816
  Receipt Date: 20210816
  Transmission Date: 20211014
  Serious: Yes (Hospitalization)
  Sender: FDA-Public Use
  Company Number: DE-BAUSCH-BL-2021-026867

PATIENT
  Age: 51 Year
  Sex: Male

DRUGS (3)
  1. DEXAMETHASONE. [Suspect]
     Active Substance: DEXAMETHASONE
     Indication: PLASMA CELL MYELOMA
     Dosage: DATE OF THE LAST DOSAGE BEFORE EVENT ONSET 11/JUN/2021
     Route: 065
     Dates: start: 20210427, end: 20210611
  2. VELCADE [Suspect]
     Active Substance: BORTEZOMIB
     Indication: PLASMA CELL MYELOMA
     Dosage: DATE OF THE LAST DOSAGE BEFORE EVENT ONSET; 11?JUN?2021
     Route: 065
     Dates: start: 20210427, end: 20210611
  3. CYCLOPHOSPHAMIDE. [Suspect]
     Active Substance: CYCLOPHOSPHAMIDE
     Indication: PLASMA CELL MYELOMA
     Dosage: DATE OF THE LAST DOSAGE BEFORE EVENT ONSET  WAS 08?JUN?2021
     Route: 065
     Dates: start: 20210427, end: 20210608

REACTIONS (1)
  - Pneumocystis jirovecii pneumonia [Recovering/Resolving]

NARRATIVE: CASE EVENT DATE: 20210615
